FAERS Safety Report 5080476-X (Version None)
Quarter: 2006Q3

REPORT INFORMATION
  Report Type: 
  Country: None (occurrence: None)
  Receive Date: 20060815
  Receipt Date: 20001026
  Transmission Date: 20061208
  Serious: Yes (Hospitalization)
  Sender: FDA-Public Use
  Company Number: US-SOLVAY-00200006166

PATIENT
  Age: 13600 Day
  Sex: Male

DRUGS (3)
  1. ACEON [Suspect]
     Indication: HYPERTENSION
     Dosage: DAILY DOSE: 4 MG.
     Route: 048
     Dates: start: 20000824, end: 20001207
  2. CELECOXIB [Concomitant]
     Indication: INTERVERTEBRAL DISC DEGENERATION
     Dosage: DAILY DOSE: 400 MG. FREQUENCY:AS NEEDED
     Route: 048
     Dates: start: 20000824
  3. ACETAMINOPHEN W/ CODEINE [Concomitant]
     Indication: INTERVERTEBRAL DISC DEGENERATION
     Dosage: DAILY DOSE: 120 MG. FREQUENCY:AS NEEDED
     Route: 048
     Dates: start: 20000824

REACTIONS (2)
  - HYPERTENSION [None]
  - INTERVERTEBRAL DISC PROTRUSION [None]
